FAERS Safety Report 18347490 (Version 6)
Quarter: 2020Q4

REPORT INFORMATION
  Report Type: Report from Study
  Country: AU (occurrence: AU)
  Receive Date: 20201006
  Receipt Date: 20201201
  Transmission Date: 20210114
  Serious: Yes (Hospitalization)
  Sender: FDA-Public Use
  Company Number: NVSC2020AU266706

PATIENT
  Age: 81 Year
  Sex: Male
  Weight: 52.5 kg

DRUGS (6)
  1. ATORVASTATIN [Concomitant]
     Active Substance: ATORVASTATIN
     Indication: HYPERCHOLESTEROLAEMIA
     Dosage: UNK
     Route: 065
     Dates: start: 20150101
  2. TNO155 [Suspect]
     Active Substance: TNO-155 MONOSUCCINATE HEMIHYDRATE
     Dosage: 20 MG, BID
     Route: 048
     Dates: start: 20201014
  3. RIBOCICLIB. [Suspect]
     Active Substance: RIBOCICLIB
     Indication: NEOPLASM
     Dosage: 150 MG, QD
     Route: 048
     Dates: start: 20200916, end: 20200929
  4. RIBOCICLIB. [Suspect]
     Active Substance: RIBOCICLIB
     Dosage: 150 MG, QD
     Route: 048
     Dates: start: 20201014
  5. TNO155 [Suspect]
     Active Substance: TNO-155 MONOSUCCINATE HEMIHYDRATE
     Indication: NEOPLASM
     Dosage: 20 MG, BID
     Route: 048
     Dates: start: 20200916, end: 20200929
  6. CETIRIZINE [Concomitant]
     Active Substance: CETIRIZINE HYDROCHLORIDE
     Indication: SEASONAL ALLERGY
     Dosage: UNK
     Route: 065
     Dates: start: 20150101

REACTIONS (1)
  - Troponin increased [Recovered/Resolved]

NARRATIVE: CASE EVENT DATE: 20200929
